FAERS Safety Report 13408747 (Version 1)
Quarter: 2017Q2

REPORT INFORMATION
  Report Type: Spontaneous
  Country: US (occurrence: US)
  Receive Date: 20170406
  Receipt Date: 20170406
  Transmission Date: 20170830
  Serious: Yes (Other)
  Sender: FDA-Public Use
  Company Number: US-JNJFOC-20170215720

PATIENT
  Sex: Male

DRUGS (1)
  1. RISPERDAL [Suspect]
     Active Substance: RISPERIDONE
     Indication: PRODUCT USED FOR UNKNOWN INDICATION
     Route: 048
     Dates: start: 201010, end: 201407

REACTIONS (6)
  - Dystonia [Unknown]
  - Weight increased [Unknown]
  - Tardive dyskinesia [Unknown]
  - Akathisia [Unknown]
  - Gynaecomastia [Unknown]
  - Emotional disorder [Unknown]
